FAERS Safety Report 15709776 (Version 1)
Quarter: 2018Q4

REPORT INFORMATION
  Report Type: Spontaneous
  Country: DE (occurrence: DE)
  Receive Date: 20181211
  Receipt Date: 20181211
  Transmission Date: 20190205
  Serious: Yes (Hospitalization, Other)
  Sender: FDA-Public Use
  Company Number: DE-MYLANLABS-2018M1091729

PATIENT
  Age: 50 Year
  Sex: Male
  Weight: 73.8 kg

DRUGS (7)
  1. TIOBLIS [Suspect]
     Active Substance: ATORVASTATIN CALCIUM\EZETIMIBE
     Indication: TYPE IIA HYPERLIPIDAEMIA
     Dosage: UNK
     Route: 048
     Dates: start: 20170520, end: 201801
  2. CLOPIDOGREL [Suspect]
     Active Substance: CLOPIDOGREL BISULFATE
     Indication: PRODUCT USED FOR UNKNOWN INDICATION
     Dosage: 1 DF IN THE MORNING
     Route: 048
     Dates: end: 20180604
  3. OMEGA-3                            /01866101/ [Suspect]
     Active Substance: OMEGA-3 FATTY ACIDS
     Indication: PRODUCT USED FOR UNKNOWN INDICATION
     Dosage: 1 DF IN THE MORNING AND 1 DF IN THE EVENING
     Route: 048
  4. TIOBLIS [Suspect]
     Active Substance: ATORVASTATIN CALCIUM\EZETIMIBE
     Indication: TYPE IIA HYPERLIPIDAEMIA
     Dosage: 1 TABLET DAILY IN THE EVENING
     Route: 048
     Dates: start: 201801, end: 20180606
  5. ACETYLSALICYLIC ACID [Concomitant]
     Active Substance: ASPIRIN
     Indication: PRODUCT USED FOR UNKNOWN INDICATION
     Dosage: 1 DF IN THE MORNING
     Route: 048
  6. NEBIVOLOL. [Suspect]
     Active Substance: NEBIVOLOL
     Indication: PRODUCT USED FOR UNKNOWN INDICATION
     Dosage: 1 DF IN THE MORNING
     Route: 048
  7. EXFORGE [Suspect]
     Active Substance: AMLODIPINE BESYLATE\VALSARTAN
     Indication: PRODUCT USED FOR UNKNOWN INDICATION
     Dosage: 1 DF IN THE MORNING
     Route: 048

REACTIONS (8)
  - Pleural effusion [Unknown]
  - Pancreatitis haemorrhagic [Not Recovered/Not Resolved]
  - Acute myocardial infarction [Unknown]
  - Ascites [Unknown]
  - Coronary revascularisation [Unknown]
  - Product intolerance [Unknown]
  - Coronary artery disease [Unknown]
  - Pancreatitis acute [Not Recovered/Not Resolved]

NARRATIVE: CASE EVENT DATE: 201705
